FAERS Safety Report 4395214-3 (Version None)
Quarter: 2004Q3

REPORT INFORMATION
  Report Type: 
  Country: None (occurrence: None)
  Receive Date: 20040712
  Receipt Date: 20040511
  Transmission Date: 20050211
  Serious: No
  Sender: FDA-Public Use
  Company Number: US-MERCK-0405USA01212B1

PATIENT
  Age: 0 Day
  Sex: Female
  Weight: 4 kg

DRUGS (4)
  1. ALLEGRA [Concomitant]
  2. SINGULAIR [Suspect]
     Indication: ASTHMA
  3. ACTIGALL [Concomitant]
     Dates: start: 20030610, end: 20030701
  4. AMBIEN [Concomitant]
     Dates: start: 20030610, end: 20030701

REACTIONS (1)
  - JAUNDICE NEONATAL [None]
